FAERS Safety Report 4837651-6 (Version None)
Quarter: 2005Q4

REPORT INFORMATION
  Report Type: 
  Country: None (occurrence: None)
  Receive Date: 20051024
  Receipt Date: 20050823
  Transmission Date: 20060501
  Serious: No
  Sender: FDA-Public Use
  Company Number: 216355

PATIENT
  Age: 52 Year
  Sex: 0

DRUGS (10)
  1. XOLAIR [Suspect]
     Indication: ASTHMA
     Dosage: 375 MG, Q2W, SUBCUTANEOUS
     Route: 058
     Dates: start: 20050407, end: 20050628
  2. DUONEB (ALBUTEROL, ALBUTEROL SULFATE, IPRATROPIUM BROMIDE) [Concomitant]
  3. ADVAIR (SALMETEROL XINAFOATE, FLUTICASONE PROPIONATE) [Concomitant]
  4. SINGULAIR [Concomitant]
  5. ZYRTEC [Concomitant]
  6. THEOPHYLLINE [Concomitant]
  7. METFORMIN HCL [Concomitant]
  8. NEXIUM [Concomitant]
  9. NASAREL SPRAY (UNK INGREDIENTS) (GENERIC COMPONENT(S) NOT KNOWN) [Concomitant]
  10. OPTIVAR (AZELASTINE HYDROCHLORIDE) [Concomitant]

REACTIONS (1)
  - CONTUSION [None]
